FAERS Safety Report 18571592 (Version 2)
Quarter: 2020Q4

REPORT INFORMATION
  Report Type: Spontaneous
  Country: JP (occurrence: JP)
  Receive Date: 20201202
  Receipt Date: 20201224
  Transmission Date: 20210114
  Serious: Yes (Hospitalization, Disabling, Other)
  Sender: FDA-Public Use
  Company Number: JP-ASTRAZENECA-2020SF58073

PATIENT
  Age: 74 Year
  Sex: Female

DRUGS (2)
  1. LYNPARZA [Suspect]
     Active Substance: OLAPARIB
     Indication: OVARIAN CANCER RECURRENT
     Dosage: UNKNOWN DOSE AND FREQUENCY
     Route: 048
     Dates: start: 20200709, end: 20201106
  2. LYNPARZA [Suspect]
     Active Substance: OLAPARIB
     Indication: OVARIAN CANCER RECURRENT
     Dosage: UNKNOWN DOSE AND FREQUENCY
     Route: 048
     Dates: start: 20200309, end: 20200625

REACTIONS (6)
  - Infective spondylitis [Recovered/Resolved with Sequelae]
  - Intervertebral discitis [Unknown]
  - Extradural abscess [Unknown]
  - Spinal cord infarction [Unknown]
  - Anaemia [Recovering/Resolving]
  - Escherichia infection [Unknown]

NARRATIVE: CASE EVENT DATE: 2020
